FAERS Safety Report 9363456 (Version 38)
Quarter: 2020Q4

REPORT INFORMATION
  Report Type: Other
  Country: CA (occurrence: CA)
  Receive Date: 20130624
  Receipt Date: 20201116
  Transmission Date: 20210114
  Serious: Yes (Other)
  Sender: FDA-Public Use
  Company Number: CA-ROCHE-1173428

PATIENT
  Age: 53 Year
  Sex: Female
  Weight: 94 kg

DRUGS (57)
  1. RITUXAN [Suspect]
     Active Substance: RITUXIMAB
     Dosage: LAST DOSE PRIOR TO SAE: 19/JUN/2014
     Route: 042
     Dates: start: 201209
  2. ATIVAN [Concomitant]
     Active Substance: LORAZEPAM
  3. LYRICA [Concomitant]
     Active Substance: PREGABALIN
  4. DIPHENHYDRAMINE HCL [Concomitant]
     Active Substance: DIPHENHYDRAMINE HYDROCHLORIDE
     Route: 048
  5. ACETAMINOPHEN. [Concomitant]
     Active Substance: ACETAMINOPHEN
     Route: 048
  6. METHYLPREDNISOLONE. [Suspect]
     Active Substance: METHYLPREDNISOLONE
     Route: 042
     Dates: start: 20130619, end: 20160114
  7. METHYLPREDNISOLONE. [Suspect]
     Active Substance: METHYLPREDNISOLONE
     Route: 042
     Dates: start: 20160712, end: 20160712
  8. CYCLOBENZAPRINE. [Concomitant]
     Active Substance: CYCLOBENZAPRINE
  9. DIPHENHYDRAMINE HCL [Concomitant]
     Active Substance: DIPHENHYDRAMINE HYDROCHLORIDE
     Route: 048
     Dates: start: 20160726, end: 20160726
  10. ACETAMINOPHEN. [Concomitant]
     Active Substance: ACETAMINOPHEN
     Route: 048
     Dates: start: 20111205, end: 20120717
  11. ACETAMINOPHEN. [Concomitant]
     Active Substance: ACETAMINOPHEN
     Route: 048
     Dates: start: 20121219, end: 20121219
  12. INSULIN [Concomitant]
     Active Substance: INSULIN NOS
     Dosage: 4 U
  13. NOVORAPID [Concomitant]
     Active Substance: INSULIN ASPART
  14. LOSEC [Concomitant]
     Active Substance: OMEPRAZOLE
  15. RITUXAN [Suspect]
     Active Substance: RITUXIMAB
     Dosage: LAST INFUSION ON 19/DEC/2017
     Route: 042
     Dates: start: 20150120
  16. METHYLPREDNISOLONE. [Suspect]
     Active Substance: METHYLPREDNISOLONE
     Indication: PREMEDICATION
     Route: 042
     Dates: start: 20110615, end: 20130605
  17. LEVEMIR [Concomitant]
     Active Substance: INSULIN DETEMIR
     Route: 058
  18. FUROSEMIDE. [Concomitant]
     Active Substance: FUROSEMIDE
     Indication: BLOOD PRESSURE MEASUREMENT
  19. ACETAMINOPHEN. [Concomitant]
     Active Substance: ACETAMINOPHEN
     Route: 048
     Dates: start: 20191113
  20. ASA [Concomitant]
     Active Substance: ASPIRIN
  21. PLAVIX [Concomitant]
     Active Substance: CLOPIDOGREL BISULFATE
     Dates: start: 2020
  22. RITUXAN [Suspect]
     Active Substance: RITUXIMAB
     Indication: RHEUMATOID ARTHRITIS
     Dosage: LAST DOSE PRIOR TO SAE: 19/JUN/2014
     Route: 042
     Dates: start: 20110615
  23. DESOXIMETASONE. [Suspect]
     Active Substance: DESOXIMETASONE
     Indication: PRODUCT USED FOR UNKNOWN INDICATION
     Route: 065
  24. SOLU-MEDROL [Suspect]
     Active Substance: METHYLPREDNISOLONE SODIUM SUCCINATE
     Indication: PREMEDICATION
     Route: 065
  25. RALIVIA [Concomitant]
     Active Substance: TRAMADOL HYDROCHLORIDE
     Dosage: TABLET - EXTENDED RELEASE
  26. LIPITOR [Concomitant]
     Active Substance: ATORVASTATIN CALCIUM
  27. ADVAIR HFA [Concomitant]
     Active Substance: FLUTICASONE PROPIONATE\SALMETEROL XINAFOATE
  28. FLONASE [Concomitant]
     Active Substance: FLUTICASONE PROPIONATE
     Dosage: 50 MCG/MD
  29. DOCUSATE SODIUM. [Concomitant]
     Active Substance: DOCUSATE SODIUM
  30. BISACODYL. [Concomitant]
     Active Substance: BISACODYL
  31. SYNTHROID [Concomitant]
     Active Substance: LEVOTHYROXINE SODIUM
  32. ACETAMINOPHEN. [Concomitant]
     Active Substance: ACETAMINOPHEN
     Dosage: NO PIRS AVAILABLE FROM 16-JAN-2017 UNTIL 22-MAY-2018
     Route: 048
     Dates: start: 20160726
  33. ACETAMINOPHEN. [Concomitant]
     Active Substance: ACETAMINOPHEN
     Route: 048
     Dates: start: 20111205, end: 20120717
  34. CORTISONE [Suspect]
     Active Substance: CORTISONE
     Indication: PRODUCT USED FOR UNKNOWN INDICATION
     Route: 065
  35. ACETYLSALICYLIC ACID [Concomitant]
     Active Substance: ASPIRIN
  36. METOPROLOL. [Concomitant]
     Active Substance: METOPROLOL
  37. METHYLPREDNISOLONE. [Suspect]
     Active Substance: METHYLPREDNISOLONE
     Route: 042
     Dates: start: 20160726
  38. METHYLPREDNISOLONE SODIUM SUCCINATE. [Suspect]
     Active Substance: METHYLPREDNISOLONE SODIUM SUCCINATE
     Indication: PREMEDICATION
     Route: 042
  39. VOLTAREN [Concomitant]
     Active Substance: DICLOFENAC SODIUM
  40. SINGULAIR [Concomitant]
     Active Substance: MONTELUKAST SODIUM
  41. ASPIRIN. [Concomitant]
     Active Substance: ASPIRIN
  42. ACETAMINOPHEN. [Concomitant]
     Active Substance: ACETAMINOPHEN
     Indication: PREMEDICATION
     Route: 048
     Dates: start: 20110615, end: 20111121
  43. ACETAMINOPHEN. [Concomitant]
     Active Substance: ACETAMINOPHEN
     Route: 048
     Dates: start: 20160114, end: 20160129
  44. PREDNISONE. [Suspect]
     Active Substance: PREDNISONE
     Indication: PRODUCT USED FOR UNKNOWN INDICATION
     Route: 065
  45. METHYLPREDNISOLONE. [Suspect]
     Active Substance: METHYLPREDNISOLONE
     Route: 042
     Dates: start: 20131118
  46. METHYLPREDNISOLONE. [Suspect]
     Active Substance: METHYLPREDNISOLONE
     Route: 042
     Dates: start: 20160129, end: 20160129
  47. TYLENOL [Concomitant]
     Active Substance: ACETAMINOPHEN
  48. DIPHENHYDRAMINE HCL [Concomitant]
     Active Substance: DIPHENHYDRAMINE HYDROCHLORIDE
     Indication: PREMEDICATION
     Route: 048
     Dates: start: 20110615, end: 20110615
  49. DIPHENHYDRAMINE HCL [Concomitant]
     Active Substance: DIPHENHYDRAMINE HYDROCHLORIDE
     Route: 048
     Dates: start: 20111121, end: 20111121
  50. SOLU-MEDROL [Suspect]
     Active Substance: METHYLPREDNISOLONE SODIUM SUCCINATE
     Indication: PREMEDICATION
     Route: 042
     Dates: start: 20110615
  51. SOLU-MEDROL [Suspect]
     Active Substance: METHYLPREDNISOLONE SODIUM SUCCINATE
     Indication: OEDEMA
  52. SOLU-MEDROL [Suspect]
     Active Substance: METHYLPREDNISOLONE SODIUM SUCCINATE
     Indication: OEDEMA
  53. HYDROMORPH CONTIN [Concomitant]
     Active Substance: HYDROMORPHONE
  54. DIPHENHYDRAMINE HCL [Concomitant]
     Active Substance: DIPHENHYDRAMINE HYDROCHLORIDE
     Route: 048
     Dates: start: 20111205, end: 20120717
  55. DIPHENHYDRAMINE HCL [Concomitant]
     Active Substance: DIPHENHYDRAMINE HYDROCHLORIDE
     Route: 048
     Dates: start: 20110615, end: 20110615
  56. DIPHENHYDRAMINE HCL [Concomitant]
     Active Substance: DIPHENHYDRAMINE HYDROCHLORIDE
     Route: 048
     Dates: start: 20160626
  57. ERGOCALCIFEROL. [Concomitant]
     Active Substance: ERGOCALCIFEROL

REACTIONS (29)
  - Dyspnoea [Unknown]
  - Arthralgia [Not Recovered/Not Resolved]
  - Arthralgia [Not Recovered/Not Resolved]
  - Blood pressure systolic increased [Unknown]
  - Heart rate decreased [Unknown]
  - Fatigue [Unknown]
  - Depression [Unknown]
  - Nausea [Unknown]
  - Blood glucose increased [Not Recovered/Not Resolved]
  - Arthropathy [Unknown]
  - Therapeutic product effect decreased [Unknown]
  - Blood pressure diastolic abnormal [Unknown]
  - Diabetic eye disease [Unknown]
  - Pain [Unknown]
  - Dyspnoea [Recovered/Resolved]
  - Pain in extremity [Unknown]
  - Pneumonia [Unknown]
  - Arthralgia [Unknown]
  - Arthralgia [Recovered/Resolved]
  - Macular degeneration [Not Recovered/Not Resolved]
  - Blood pressure fluctuation [Unknown]
  - Blood glucose fluctuation [Unknown]
  - Cataract [Not Recovered/Not Resolved]
  - Pneumonia [Recovered/Resolved]
  - Vein disorder [Unknown]
  - Pain in extremity [Recovered/Resolved]
  - Blood pressure fluctuation [Unknown]
  - Blood pressure increased [Unknown]
  - Blood pressure diastolic decreased [Unknown]

NARRATIVE: CASE EVENT DATE: 20121220
